FAERS Safety Report 14779477 (Version 1)
Quarter: 2018Q2

REPORT INFORMATION
  Report Type: Spontaneous
  Country: US (occurrence: US)
  Receive Date: 20180419
  Receipt Date: 20180419
  Transmission Date: 20180711
  Serious: No
  Sender: FDA-Public Use
  Company Number: PHEH2018US015012

PATIENT
  Sex: Female
  Weight: 115.2 kg

DRUGS (2)
  1. EXJADE [Suspect]
     Active Substance: DEFERASIROX
     Indication: PRODUCT USED FOR UNKNOWN INDICATION
     Dosage: 20 MG PER KG
     Route: 048
     Dates: start: 20171130, end: 20171213
  2. EXJADE [Suspect]
     Active Substance: DEFERASIROX
     Dosage: 10 MG PER KG
     Route: 048
     Dates: start: 20171223, end: 20180111

REACTIONS (2)
  - Renal function test abnormal [Recovering/Resolving]
  - Diarrhoea [Recovered/Resolved]
